FAERS Safety Report 8568340-2 (Version None)
Quarter: 2012Q3

REPORT INFORMATION
  Report Type: 
  Country: None (occurrence: None)
  Receive Date: 20120803
  Receipt Date: 20120727
  Transmission Date: 20120928
  Serious: No
  Sender: FDA-Public Use
  Company Number: US-ABBOTT-12P-163-0963143-00

PATIENT
  Sex: Female
  Weight: 65.83 kg

DRUGS (8)
  1. MULTI-VITAMIN [Concomitant]
     Indication: VITAMIN SUPPLEMENTATION
  2. NIASPAN [Suspect]
     Indication: BLOOD CHOLESTEROL INCREASED
     Dates: start: 20120401
  3. ASPIRIN [Concomitant]
     Indication: CARDIOVASCULAR EVENT PROPHYLAXIS
  4. CO Q 10 [Concomitant]
     Indication: SUPPLEMENTATION THERAPY
  5. TEGRETOL-XR [Concomitant]
     Indication: CONVULSION
     Dosage: 600 DAILY
  6. SYNTHROID [Concomitant]
     Indication: THYROID DISORDER
     Dosage: 75MCG DAILY
  7. LIPITOR [Concomitant]
     Indication: BLOOD CHOLESTEROL INCREASED
     Dosage: 40 DAILY
  8. CLARITIN [Concomitant]
     Indication: HYPERSENSITIVITY

REACTIONS (2)
  - PRURITUS GENERALISED [None]
  - FLUSHING [None]
